FAERS Safety Report 25179844 (Version 4)
Quarter: 2025Q2

REPORT INFORMATION
  Report Type: Spontaneous
  Country: GB (occurrence: GB)
  Receive Date: 20250409
  Receipt Date: 20250522
  Transmission Date: 20250716
  Serious: No
  Sender: PFIZER
  Company Number: GB-PFIZER INC-202500074851

PATIENT
  Age: 25 Year
  Sex: Female

DRUGS (1)
  1. GENOTROPIN [Suspect]
     Active Substance: SOMATROPIN
     Route: 058

REACTIONS (1)
  - Device defective [Not Recovered/Not Resolved]

NARRATIVE: CASE EVENT DATE: 20250126
